FAERS Safety Report 5747953-7 (Version None)
Quarter: 2008Q2

REPORT INFORMATION
  Report Type: 
  Country: None (occurrence: None)
  Receive Date: 20080523
  Receipt Date: 20080430
  Transmission Date: 20081010
  Serious: No
  Sender: FDA-Public Use
  Company Number: US-JNJFOC-20080500399

PATIENT
  Age: 40 Year
  Sex: Female

DRUGS (2)
  1. INVEGA [Suspect]
     Indication: BIPOLAR DISORDER
     Route: 048
  2. VALTREX [Concomitant]
     Indication: HERPES VIRUS INFECTION
     Route: 048

REACTIONS (2)
  - BLOOD PROLACTIN INCREASED [None]
  - BREAST PAIN [None]
